FAERS Safety Report 5105609-8 (Version None)
Quarter: 2006Q3

REPORT INFORMATION
  Report Type: 
  Country: None (occurrence: None)
  Receive Date: 20060915
  Receipt Date: 20060904
  Transmission Date: 20061208
  Serious: Yes (Other)
  Sender: FDA-Public Use
  Company Number: US-ROCHE-462033

PATIENT
  Age: 44 Year
  Sex: Female

DRUGS (6)
  1. PEGASYS [Suspect]
     Indication: HEPATITIS C
     Route: 058
     Dates: start: 20060625
  2. RIBAVIRIN [Suspect]
     Indication: HEPATITIS C
     Route: 048
     Dates: start: 20060625
  3. EFFEXOR [Concomitant]
     Indication: DEPRESSION
     Route: 048
  4. TRAZODONE HCL [Concomitant]
     Indication: INSOMNIA
     Route: 048
  5. ADVAIR DISKUS 100/50 [Concomitant]
     Dosage: DAILY.
  6. ALBUTEROL [Concomitant]
     Dosage: AS NECESSARY.

REACTIONS (1)
  - THROMBOSIS [None]
